FAERS Safety Report 10437448 (Version 2)
Quarter: 2014Q3

REPORT INFORMATION
  Report Type: Spontaneous
  Country: US (occurrence: US)
  Receive Date: 20140908
  Receipt Date: 20140912
  Transmission Date: 20150326
  Serious: Yes (Hospitalization)
  Sender: FDA-Public Use
  Company Number: US-TEVA-506011USA

PATIENT
  Age: 65 Year
  Sex: Female

DRUGS (4)
  1. METHOTREXATE [Concomitant]
     Active Substance: METHOTREXATE
  2. PROVIGIL [Suspect]
     Active Substance: MODAFINIL
     Indication: PRODUCT USED FOR UNKNOWN INDICATION
     Dosage: 200 MILLIGRAM DAILY;
     Dates: start: 2003
  3. FOLIC ACID. [Concomitant]
     Active Substance: FOLIC ACID
  4. PROZAC [Concomitant]
     Active Substance: FLUOXETINE HYDROCHLORIDE

REACTIONS (13)
  - Incorrect dose administered [Unknown]
  - Intentional overdose [Unknown]
  - Tremor [Not Recovered/Not Resolved]
  - Stupor [Not Recovered/Not Resolved]
  - Feeling jittery [Not Recovered/Not Resolved]
  - Bite [Not Recovered/Not Resolved]
  - Disturbance in attention [Unknown]
  - Rash erythematous [Recovered/Resolved]
  - Mass [Recovered/Resolved]
  - Hypertension [Unknown]
  - Somnolence [Unknown]
  - Rash pruritic [Recovered/Resolved]
  - Palpitations [Unknown]

NARRATIVE: CASE EVENT DATE: 20140829
